FAERS Safety Report 9581371 (Version 1)
Quarter: 2013Q4

REPORT INFORMATION
  Report Type: Spontaneous
  Country: FR (occurrence: FR)
  Receive Date: 20131002
  Receipt Date: 20131002
  Transmission Date: 20140711
  Serious: Yes (Hospitalization)
  Sender: FDA-Public Use
  Company Number: FR-GLAXOSMITHKLINE-B0926264A

PATIENT
  Age: 72 Year
  Sex: Male

DRUGS (2)
  1. DEROXAT [Suspect]
     Indication: PRODUCT USED FOR UNKNOWN INDICATION
     Route: 048
     Dates: end: 201308
  2. IXEL [Suspect]
     Indication: PRODUCT USED FOR UNKNOWN INDICATION
     Dosage: 25MG PER DAY
     Route: 048
     Dates: start: 20130803

REACTIONS (8)
  - Serotonin syndrome [Unknown]
  - Palpitations [Unknown]
  - Hyperhidrosis [Unknown]
  - Tachycardia [Unknown]
  - Hypertension [Unknown]
  - Peripheral coldness [Unknown]
  - Drug interaction [Unknown]
  - Medication error [Unknown]
